FAERS Safety Report 15139744 (Version 1)
Quarter: 2018Q3

REPORT INFORMATION
  Report Type: Spontaneous
  Country: ES (occurrence: ES)
  Receive Date: 20180713
  Receipt Date: 20180713
  Transmission Date: 20181010
  Serious: Yes (Other)
  Sender: FDA-Public Use
  Company Number: ES-AUROBINDO-AUR-APL-2018-035234

PATIENT
  Age: 39 Year
  Sex: Female

DRUGS (2)
  1. LAMIVUDINE FILM?COATED TABLETS 300 MG [Suspect]
     Active Substance: LAMIVUDINE
     Indication: HIV INFECTION
     Dosage: 300 MILLIGRAM, ONCE A DAY
     Route: 048
     Dates: start: 20171019, end: 20171221
  2. COBICISTAT W/DARUNAVIR [Suspect]
     Active Substance: COBICISTAT\DARUNAVIR ETHANOLATE
     Indication: HIV INFECTION
     Dosage: 1 DOSAGE FORM, ONCE A DAY
     Route: 048
     Dates: start: 20171019, end: 20171221

REACTIONS (2)
  - Nightmare [Recovering/Resolving]
  - Headache [Recovering/Resolving]

NARRATIVE: CASE EVENT DATE: 20171026
